FAERS Safety Report 8502764-4 (Version None)
Quarter: 2012Q3

REPORT INFORMATION
  Report Type: 
  Country: None (occurrence: None)
  Receive Date: 20120711
  Receipt Date: 20120703
  Transmission Date: 20120928
  Serious: Yes (Other)
  Sender: FDA-Public Use
  Company Number: HN-ABBOTT-12P-074-0951881-00

PATIENT
  Sex: Female

DRUGS (1)
  1. HUMIRA [Suspect]
     Indication: PSORIASIS
     Dosage: 40MG/0.8ML EVERY OTHER WEEK
     Route: 058
     Dates: end: 20120601

REACTIONS (2)
  - LYMPHADENOPATHY [None]
  - LYMPH NODE TUBERCULOSIS [None]
